FAERS Safety Report 9301987 (Version 3)
Quarter: 2013Q3

REPORT INFORMATION
  Report Type: Spontaneous
  Country: DK (occurrence: IT)
  Receive Date: 20130521
  Receipt Date: 20130801
  Transmission Date: 20140515
  Serious: Yes (Life-Threatening)
  Sender: FDA-Public Use
  Company Number: IT-FRI-1000045243

PATIENT
  Age: 23 Year
  Sex: Female

DRUGS (4)
  1. CITALOPRAM ORAL SOLUTION [Suspect]
     Route: 048
     Dates: start: 20130416, end: 20130416
  2. LAROXYL [Suspect]
     Route: 048
     Dates: start: 20130416, end: 20130416
  3. RIVOTRIL [Suspect]
     Route: 048
     Dates: start: 20130416, end: 20130416
  4. CLOTIAZEPAM [Suspect]
     Route: 048
     Dates: start: 20130416, end: 20130416

REACTIONS (3)
  - Coma [Recovered/Resolved]
  - Toxicity to various agents [Recovered/Resolved]
  - Intentional overdose [Recovered/Resolved]
